FAERS Safety Report 4655927-2 (Version None)
Quarter: 2005Q2

REPORT INFORMATION
  Report Type: 
  Country: None (occurrence: None)
  Receive Date: 20050506
  Receipt Date: 20050506
  Transmission Date: 20051028
  Serious: Yes (Other)
  Sender: FDA-Public Use
  Company Number: None

PATIENT
  Age: 21 Month
  Sex: Male
  Weight: 17.6903 kg

DRUGS (2)
  1. AMICAR [Suspect]
     Indication: FACTOR VIII DEFICIENCY
     Dosage: 4 ML   Q6H   ORAL
     Route: 048
     Dates: start: 20050429, end: 20050430
  2. AMICAR [Suspect]
     Indication: GINGIVAL BLEEDING
     Dosage: 4 ML   Q6H   ORAL
     Route: 048
     Dates: start: 20050429, end: 20050430

REACTIONS (1)
  - VOMITING [None]
